FAERS Safety Report 8106318-3 (Version None)
Quarter: 2012Q1

REPORT INFORMATION
  Report Type: 
  Country: None (occurrence: None)
  Receive Date: 20120130
  Receipt Date: 20120116
  Transmission Date: 20120608
  Serious: Yes (Hospitalization)
  Sender: FDA-Public Use
  Company Number: 2012-0219

PATIENT
  Age: 66 Year
  Sex: Male

DRUGS (8)
  1. SOMASOMATULINE AUTOSOION 120MG (LANREOTIDE AUTOGEL) (LANREOTIDE) (LANR [Suspect]
  2. SOMATULINE AUTOSOLUTION 120MG (LANREOTIDE AUTOGEL) (LANREOTIDE) (LANRE [Suspect]
     Indication: PRODUCT USED FOR UNKNOWN INDICATION
     Dosage: 120MG (120 MG, 1 IN 28 D), INTRAMUSCULAR
     Route: 030
     Dates: start: 20111020
  3. LISINOPRIL [Concomitant]
  4. PANZYTRAT (PANCREATIN) [Concomitant]
  5. METOPROLOL SUCC (METOPROLOL SUCCINATE) [Concomitant]
  6. ASCAL CARDIO (CARBASALATE CALCIUM) [Concomitant]
  7. TOLBUTAMIDE [Concomitant]
  8. SOMASOMATULINE AUTOSOION 120MG (LANREOTIDE AUTOGEL) (LANREOTIDE) (LANR [Suspect]

REACTIONS (1)
  - METASTASES TO LUNG [None]
